FAERS Safety Report 5803032-1 (Version None)
Quarter: 2008Q3

REPORT INFORMATION
  Report Type: 
  Country: None (occurrence: None)
  Receive Date: 20080708
  Receipt Date: 20080627
  Transmission Date: 20090109
  Serious: Yes (Hospitalization)
  Sender: FDA-Public Use
  Company Number: JP-JNJFOC-20080700749

PATIENT
  Age: 46 Year
  Sex: Male

DRUGS (5)
  1. LEVOFLOXACIN [Suspect]
     Indication: ANTIBIOTIC THERAPY
     Route: 048
  2. LOXONIN [Interacting]
     Indication: ANALGESIA
     Route: 048
  3. LOXONIN [Interacting]
     Indication: ANTIPYRESIS
     Route: 048
  4. MUCOSTA [Suspect]
     Indication: GASTRITIS PROPHYLAXIS
     Route: 048
  5. COLGEN KOWA [Concomitant]
     Route: 065

REACTIONS (2)
  - DRUG INTERACTION [None]
  - STEVENS-JOHNSON SYNDROME [None]
